FAERS Safety Report 18560927 (Version 2)
Quarter: 2021Q1

REPORT INFORMATION
  Report Type: Spontaneous
  Country: US (occurrence: US)
  Receive Date: 20201130
  Receipt Date: 20210109
  Transmission Date: 20210419
  Serious: Yes (Life-Threatening, Hospitalization)
  Sender: FDA-Public Use
  Company Number: US-TEVA-2020-US-1853630

PATIENT
  Age: 14 Year
  Sex: Female

DRUGS (9)
  1. ALBUTEROL. [Suspect]
     Active Substance: ALBUTEROL
     Indication: STATUS ASTHMATICUS
     Dosage: METERED DOSE INHALER
     Route: 055
  2. MAGNESIUM [Suspect]
     Active Substance: MAGNESIUM
     Indication: STATUS ASTHMATICUS
     Route: 042
  3. TERBUTALINE [Suspect]
     Active Substance: TERBUTALINE
     Indication: STATUS ASTHMATICUS
     Route: 042
  4. METHYLPREDNISOLONE. [Suspect]
     Active Substance: METHYLPREDNISOLONE
     Indication: STATUS ASTHMATICUS
     Route: 042
  5. IPRATROPIUM [Concomitant]
     Active Substance: IPRATROPIUM
     Indication: STATUS ASTHMATICUS
     Dosage: THREE NEBULISED TREATMENTS
     Route: 055
  6. ALBUTEROL. [Suspect]
     Active Substance: ALBUTEROL
     Dosage: CONTINUOUS TREATMENT
     Route: 055
  7. ALBUTEROL. [Suspect]
     Active Substance: ALBUTEROL
     Dosage: THREE NEBULISED TREATMENTS
     Route: 055
  8. SEVOFLURANE. [Suspect]
     Active Substance: SEVOFLURANE
     Indication: STATUS ASTHMATICUS
     Route: 050
  9. AMINOPHYLLINE. [Suspect]
     Active Substance: AMINOPHYLLINE
     Indication: STATUS ASTHMATICUS
     Route: 042

REACTIONS (1)
  - Drug ineffective [Unknown]
